FAERS Safety Report 10677935 (Version 4)
Quarter: 2015Q3

REPORT INFORMATION
  Report Type: Report from Study
  Country: US (occurrence: US)
  Receive Date: 20141229
  Receipt Date: 20150904
  Transmission Date: 20151125
  Serious: Yes (Death, Hospitalization)
  Sender: FDA-Public Use
  Company Number: US-BIOGENIDEC-2014BI137971

PATIENT
  Age: 32 Year
  Sex: Female

DRUGS (2)
  1. TYSABRI [Suspect]
     Active Substance: NATALIZUMAB
     Indication: MULTIPLE SCLEROSIS
     Route: 042
     Dates: start: 20080229, end: 20140729
  2. TYSABRI [Suspect]
     Active Substance: NATALIZUMAB
     Indication: MULTIPLE SCLEROSIS
     Route: 042
     Dates: start: 20141118, end: 20141118

REACTIONS (9)
  - Death [Fatal]
  - Pulmonary thrombosis [Fatal]
  - Muscle spasms [Unknown]
  - Intracardiac thrombus [Fatal]
  - Respiratory arrest [Fatal]
  - Brain hypoxia [Fatal]
  - Obstruction gastric [Fatal]
  - Brain death [Fatal]
  - Multiple sclerosis relapse [Unknown]

NARRATIVE: CASE EVENT DATE: 20141123
